APPROVED DRUG PRODUCT: ENTERO VU 24%
Active Ingredient: BARIUM SULFATE
Strength: 24%
Dosage Form/Route: SUSPENSION;ORAL
Application: N208143 | Product #008
Applicant: BRACCO DIAGNOSTICS INC
Approved: May 29, 2020 | RLD: Yes | RS: Yes | Type: RX